FAERS Safety Report 8167961-9 (Version None)
Quarter: 2012Q1

REPORT INFORMATION
  Report Type: 
  Country: None (occurrence: None)
  Receive Date: 20120227
  Receipt Date: 20120216
  Transmission Date: 20120608
  Serious: Yes (Hospitalization, Disabling)
  Sender: FDA-Public Use
  Company Number: AT-GLAXOSMITHKLINE-B0717164A

PATIENT
  Age: 18 Year
  Sex: Male
  Weight: 66 kg

DRUGS (4)
  1. ZOVIRAX [Suspect]
     Indication: PROPHYLAXIS
     Dosage: 800MG THREE TIMES PER DAY
     Route: 048
     Dates: start: 20100618, end: 20101226
  2. GANCICLOVIR [Concomitant]
     Dates: start: 20110105, end: 20110107
  3. ZOVIRAX [Suspect]
     Route: 048
     Dates: start: 20110111, end: 20110127
  4. ZOVIRAX [Suspect]
     Indication: PRODUCT USED FOR UNKNOWN INDICATION
     Route: 048
     Dates: start: 20101231, end: 20101231

REACTIONS (21)
  - ENCEPHALITIS [None]
  - HERPES ZOSTER [None]
  - DYSPHAGIA [None]
  - GENERAL PHYSICAL HEALTH DETERIORATION [None]
  - DEVICE RELATED INFECTION [None]
  - IMPULSIVE BEHAVIOUR [None]
  - EPILEPSY [None]
  - CIRCULATORY COLLAPSE [None]
  - PYREXIA [None]
  - MOOD SWINGS [None]
  - PANCYTOPENIA [None]
  - TREMOR [None]
  - IMMUNE RECONSTITUTION SYNDROME [None]
  - C-REACTIVE PROTEIN INCREASED [None]
  - SUICIDAL IDEATION [None]
  - PERSONALITY CHANGE [None]
  - MUSCLE TWITCHING [None]
  - VERTIGO [None]
  - DYSARTHRIA [None]
  - LYMPHOPENIA [None]
  - HYPOPHAGIA [None]
